FAERS Safety Report 8150082-9 (Version None)
Quarter: 2012Q1

REPORT INFORMATION
  Report Type: 
  Country: None (occurrence: None)
  Receive Date: 20120220
  Receipt Date: 20120209
  Transmission Date: 20120608
  Serious: Yes (Hospitalization, Other)
  Sender: FDA-Public Use
  Company Number: US-BIOGENIDEC-2011BI030586

PATIENT
  Age: 47 Year
  Sex: Female

DRUGS (4)
  1. LIPITOR [Concomitant]
     Indication: BLOOD CHOLESTEROL INCREASED
  2. DIOVAN HCT [Concomitant]
     Indication: HYPERTENSION
  3. NEXIUM [Concomitant]
     Indication: BARRETT'S OESOPHAGUS
  4. TYSABRI [Suspect]
     Indication: MULTIPLE SCLEROSIS
     Route: 042
     Dates: start: 20090615

REACTIONS (23)
  - ALOPECIA [None]
  - PROCEDURAL PAIN [None]
  - BLOOD GLUCOSE DECREASED [None]
  - BENIGN NEOPLASM OF EYE [None]
  - PROCEDURAL HEADACHE [None]
  - EYE SWELLING [None]
  - DEPRESSED MOOD [None]
  - PHOTOPHOBIA [None]
  - MEMORY IMPAIRMENT [None]
  - DRUG WITHDRAWAL SYNDROME [None]
  - BLOOD POTASSIUM DECREASED [None]
  - SKIN CANCER [None]
  - HYPERTENSION [None]
  - ANAEMIA [None]
  - MULTIPLE SCLEROSIS RELAPSE [None]
  - LOSS OF CONSCIOUSNESS [None]
  - BURNING SENSATION [None]
  - ITCHING SCAR [None]
  - PROCEDURAL COMPLICATION [None]
  - PAIN [None]
  - VISION BLURRED [None]
  - FALL [None]
  - COLONIC POLYP [None]
